FAERS Safety Report 16633378 (Version 1)
Quarter: 2019Q3

REPORT INFORMATION
  Report Type: Spontaneous
  Country: FR (occurrence: FR)
  Receive Date: 20190725
  Receipt Date: 20190725
  Transmission Date: 20191004
  Serious: Yes (Other)
  Sender: FDA-Public Use
  Company Number: PHHY2019FR170288

PATIENT
  Age: 58 Year
  Sex: Male

DRUGS (6)
  1. AXEPIM [Suspect]
     Active Substance: CEFEPIME HYDROCHLORIDE
     Indication: DEVICE RELATED INFECTION
     Dosage: 4 G, QD
     Route: 042
     Dates: start: 20190620, end: 20190706
  2. BACTRIM [Suspect]
     Active Substance: SULFAMETHOXAZOLE\TRIMETHOPRIM
     Indication: DEVICE RELATED INFECTION
     Dosage: 6 DF, QD
     Route: 048
     Dates: start: 20190706, end: 20190716
  3. AMOXICILLIN. [Suspect]
     Active Substance: AMOXICILLIN
     Indication: DEVICE RELATED INFECTION
     Dosage: 6 G, QD
     Route: 048
     Dates: start: 20190706, end: 20190716
  4. CUBICIN [Suspect]
     Active Substance: DAPTOMYCIN
     Indication: DEVICE RELATED INFECTION
     Dosage: 700 MG, QD
     Route: 042
     Dates: start: 20190620, end: 20190706
  5. PLAVIX [Suspect]
     Active Substance: CLOPIDOGREL BISULFATE
     Indication: DEVICE RELATED INFECTION
     Dosage: 1 DF, QD
     Route: 048
     Dates: start: 20190626
  6. RIFADIN [Suspect]
     Active Substance: RIFAMPIN
     Indication: DEVICE RELATED INFECTION
     Dosage: 1200 MG, QD
     Route: 042
     Dates: start: 20190625, end: 20190712

REACTIONS (4)
  - Hepatocellular injury [Recovering/Resolving]
  - Condition aggravated [Recovering/Resolving]
  - Rash [Recovered/Resolved]
  - Eosinophilia [Recovered/Resolved]

NARRATIVE: CASE EVENT DATE: 20190703
